FAERS Safety Report 14703109 (Version 1)
Quarter: 2018Q2

REPORT INFORMATION
  Report Type: Spontaneous
  Country: FR (occurrence: FR)
  Receive Date: 20180402
  Receipt Date: 20180402
  Transmission Date: 20180711
  Serious: Yes (Other)
  Sender: FDA-Public Use
  Company Number: FR-MERCK KGAA-2044888

PATIENT
  Age: 54 Year
  Sex: Female

DRUGS (2)
  1. LEVOTHYROX [Suspect]
     Active Substance: LEVOTHYROXINE
  2. NOVOTHYROX [Suspect]
     Active Substance: LEVOTHYROXINE SODIUM
     Indication: HYPOTHYROIDISM

REACTIONS (13)
  - Dysphonia [Recovering/Resolving]
  - Frostbite [Recovering/Resolving]
  - Psoriasis [Recovering/Resolving]
  - Hyperventilation [Recovering/Resolving]
  - Sinusitis [Recovering/Resolving]
  - Raynaud^s phenomenon [Recovering/Resolving]
  - Liver disorder [Recovering/Resolving]
  - Menstruation irregular [Recovering/Resolving]
  - Temperature intolerance [Recovering/Resolving]
  - Abdominal distension [Recovering/Resolving]
  - Autoimmune thyroiditis [Recovering/Resolving]
  - Fatigue [Recovering/Resolving]
  - Breast cancer [Recovering/Resolving]
